FAERS Safety Report 16237077 (Version 1)
Quarter: 2019Q2

REPORT INFORMATION
  Report Type: Spontaneous
  Country: US (occurrence: US)
  Receive Date: 20190425
  Receipt Date: 20190425
  Transmission Date: 20190711
  Serious: No
  Sender: FDA-Public Use
  Company Number: US-BEH-2019101650

PATIENT
  Age: 49 Year
  Sex: Female

DRUGS (1)
  1. HIZENTRA [Suspect]
     Active Substance: HUMAN IMMUNOGLOBULIN G
     Indication: HYPOGAMMAGLOBULINAEMIA
     Dosage: 16 G, QW
     Route: 058
     Dates: start: 20190226

REACTIONS (4)
  - Productive cough [Unknown]
  - Decreased appetite [Unknown]
  - Sinusitis [Unknown]
  - Headache [Unknown]
